FAERS Safety Report 6456567-5 (Version None)
Quarter: 2009Q4

REPORT INFORMATION
  Report Type: 
  Country: None (occurrence: None)
  Receive Date: 20091125
  Receipt Date: 20091119
  Transmission Date: 20100525
  Serious: Yes (Death)
  Sender: FDA-Public Use
  Company Number: JP-ASTRAZENECA-2009SE27122

PATIENT
  Age: 78 Year
  Sex: Female
  Weight: 50 kg

DRUGS (3)
  1. DIPRIVAN [Suspect]
     Indication: GENERAL ANAESTHESIA
     Route: 042
     Dates: start: 20080523, end: 20080523
  2. ESLAX [Suspect]
     Indication: GENERAL ANAESTHESIA
     Route: 042
     Dates: start: 20080523, end: 20080523
  3. ULTIVA [Suspect]
     Indication: GENERAL ANAESTHESIA
     Route: 042
     Dates: start: 20080523, end: 20080523

REACTIONS (2)
  - CARDIAC ARREST [None]
  - SHOCK [None]
